FAERS Safety Report 8770462 (Version 1)
Quarter: 2012Q4

REPORT INFORMATION
  Report Type: 
  Country: FR (occurrence: FR)
  Receive Date: 20120906
  Receipt Date: 20120906
  Transmission Date: 20130627
  Serious: Yes (Life-Threatening)
  Sender: FDA-Public Use
  Company Number: FR-BAXTER-2012BAX015427

PATIENT
  Age: 58 Year
  Sex: Male

DRUGS (11)
  1. SUPRANE, LIQUIDE POUR INHALATION PAR VAPEUR [Suspect]
     Indication: ANESTHESIA
     Route: 055
     Dates: start: 20120813, end: 20120813
  2. SUPRANE, LIQUIDE POUR INHALATION PAR VAPEUR [Suspect]
     Indication: URETEROSCOPY
  3. SUFENTANIL [Suspect]
     Indication: ANESTHESIA
     Route: 042
     Dates: start: 20120813, end: 20120813
  4. SUFENTANIL [Suspect]
     Indication: URETEROSCOPY
  5. PROPOFOL FRESENIUS [Suspect]
     Indication: ANESTHESIA
     Route: 042
     Dates: start: 20120813, end: 20120813
  6. PROPOFOL FRESENIUS [Suspect]
     Indication: URETEROSCOPY
  7. XELODA [Concomitant]
     Indication: DRUG USE FOR UNKNOWN INDICATION
     Route: 048
     Dates: start: 201206
  8. TEMODAL [Concomitant]
     Indication: DRUG USE FOR UNKNOWN INDICATION
     Route: 048
     Dates: start: 201206
  9. OCTREOTIDE [Concomitant]
     Indication: DRUG USE FOR UNKNOWN INDICATION
     Route: 030
     Dates: start: 201206
  10. ONDANSETRON [Concomitant]
     Indication: DRUG USE FOR UNKNOWN INDICATION
     Route: 048
     Dates: start: 201206
  11. PREDNISOLONE [Concomitant]
     Indication: DRUG USE FOR UNKNOWN INDICATION
     Route: 048
     Dates: start: 201206

REACTIONS (2)
  - Anaphylactoid reaction [Recovered/Resolved]
  - Pain in extremity [Unknown]
